FAERS Safety Report 17038455 (Version 24)
Quarter: 2021Q4

REPORT INFORMATION
  Report Type: Spontaneous
  Country: BR (occurrence: BR)
  Receive Date: 20191115
  Receipt Date: 20211115
  Transmission Date: 20220303
  Serious: Yes (Hospitalization, Other)
  Sender: FDA-Public Use
  Company Number: BR-KOREA IPSEN PHARMA-2019-10214

PATIENT
  Age: 69 Year
  Sex: Female

DRUGS (8)
  1. LANREOTIDE ACETATE [Suspect]
     Active Substance: LANREOTIDE ACETATE
     Indication: Acromegaly
     Dosage: APPROXIMATELY 5 YEARS AGO
     Route: 058
  2. LANREOTIDE ACETATE [Suspect]
     Active Substance: LANREOTIDE ACETATE
     Route: 058
  3. LANREOTIDE ACETATE [Suspect]
     Active Substance: LANREOTIDE ACETATE
     Route: 058
  4. LANREOTIDE ACETATE [Suspect]
     Active Substance: LANREOTIDE ACETATE
     Route: 058
  5. SYNTHROID [Concomitant]
     Active Substance: LEVOTHYROXINE SODIUM
     Indication: Hypothyroidism
     Dosage: FOR 15 YEARS
     Route: 048
  6. MICARDIS [Concomitant]
     Active Substance: TELMISARTAN
     Indication: Hypertension
     Dosage: 40/5 MG, FOR 15 YEARS
     Route: 048
  7. MICARDIS [Concomitant]
     Active Substance: TELMISARTAN
     Dosage: 80/10 MG
     Route: 048
  8. FLUOXETINE HYDROCHLORIDE [Concomitant]
     Active Substance: FLUOXETINE HYDROCHLORIDE
     Indication: Anxiety
     Dosage: FOR SIX MONTHS
     Route: 048

REACTIONS (37)
  - Dehydration [Recovered/Resolved]
  - Vomiting [Recovered/Resolved]
  - Musculoskeletal discomfort [Not Recovered/Not Resolved]
  - Gait disturbance [Not Recovered/Not Resolved]
  - Diarrhoea [Recovered/Resolved]
  - Cartilage injury [Not Recovered/Not Resolved]
  - Spinal pain [Not Recovered/Not Resolved]
  - Pain in extremity [Not Recovered/Not Resolved]
  - Arthralgia [Not Recovered/Not Resolved]
  - Insulin-like growth factor increased [Not Recovered/Not Resolved]
  - Syncope [Recovered/Resolved]
  - Syncope [Recovered/Resolved]
  - Dizziness [Recovered/Resolved]
  - Malaise [Recovered/Resolved]
  - Hyperglycaemia [Recovered/Resolved]
  - Anaemia [Recovered/Resolved]
  - Asthenia [Recovered/Resolved]
  - Hypertension [Recovering/Resolving]
  - Panic disorder [Recovered/Resolved]
  - Stress [Recovered/Resolved]
  - Weight decreased [Recovered/Resolved]
  - Dizziness [Recovered/Resolved]
  - Dizziness [Recovered/Resolved]
  - Blood pressure increased [Recovering/Resolving]
  - Decreased appetite [Recovered/Resolved]
  - Overweight [Not Recovered/Not Resolved]
  - Myalgia [Recovered/Resolved]
  - Dyspepsia [Recovered/Resolved]
  - Nausea [Recovering/Resolving]
  - Flatulence [Recovered/Resolved]
  - Vomiting [Recovered/Resolved]
  - Insomnia [Recovered/Resolved]
  - Diarrhoea [Recovered/Resolved]
  - Lactose intolerance [Recovered/Resolved]
  - Product dose omission issue [Unknown]
  - Product availability issue [Unknown]
  - Off label use [Unknown]

NARRATIVE: CASE EVENT DATE: 20191103
